FAERS Safety Report 4562748-8 (Version None)
Quarter: 2005Q1

REPORT INFORMATION
  Report Type: 
  Country: None (occurrence: None)
  Receive Date: 20050124
  Receipt Date: 20050113
  Transmission Date: 20050727
  Serious: Yes (Hospitalization)
  Sender: FDA-Public Use
  Company Number: 208704

PATIENT
  Age: 61 Year
  Sex: Male

DRUGS (6)
  1. MABTHERA(RITUXIMAB) CONC FOR SOLUTION FOR INFUSION [Suspect]
     Indication: NON-HODGKIN'S LYMPHOMA
     Dosage: 840 MG, Q3W, INTRAVENOUS
     Route: 042
     Dates: start: 20030710, end: 20031021
  2. CYCLOPHOSPHAMIDE [Suspect]
     Indication: NON-HODGKIN'S LYMPHOMA
     Dosage: 1670 MG, Q3W, INTRAVENOUS
     Route: 042
     Dates: start: 20030710, end: 20031002
  3. VINCRISTINE [Suspect]
     Indication: NON-HODGKIN'S LYMPHOMA
     Dosage: 2 MG, Q3W, INTRAVENOUS
     Route: 042
     Dates: start: 20030710, end: 20031002
  4. PREDNISONE [Suspect]
     Indication: NON-HODGKIN'S LYMPHOMA
     Dosage: 500 MG, QDX3D/21DC, ORAL
     Route: 048
     Dates: start: 20030710, end: 20031002
  5. DOXORUBICIN(DOXORUBICIN, DOXORUBICIN HYDROCHLORIDE) [Suspect]
     Indication: NON-HODGKIN'S LYMPHOMA
     Dosage: 110 MG, Q3W, INTRAVENOUS
     Route: 042
     Dates: start: 20030710, end: 20031002
  6. G-CSF (FILGRASTIM) [Concomitant]

REACTIONS (1)
  - FEBRILE NEUTROPENIA [None]
